FAERS Safety Report 7685175-3 (Version None)
Quarter: 2011Q3

REPORT INFORMATION
  Report Type: 
  Country: None (occurrence: None)
  Receive Date: 20110816
  Receipt Date: 20110728
  Transmission Date: 20111222
  Serious: Yes (Hospitalization, Other)
  Sender: FDA-Public Use
  Company Number: US-BAYER-2011-004361

PATIENT
  Age: 77 Year
  Sex: Female
  Weight: 51.701 kg

DRUGS (34)
  1. ALLEGRA D 24 HOUR [Concomitant]
     Indication: SINUS DISORDER
     Dosage: 60-120 MG,  PRN
     Route: 048
     Dates: start: 20010101, end: 20100811
  2. GLIPIZIDE [Concomitant]
     Indication: DIABETES MELLITUS
     Dosage: 2.5 MG, QD
     Route: 048
     Dates: start: 19991101
  3. GLIPIZIDE [Concomitant]
     Dosage: 2.5 MG, QD
     Route: 048
     Dates: start: 20110609
  4. NORVASC [Concomitant]
     Indication: HYPERTENSION
     Dosage: 10 MG, QD
     Route: 048
     Dates: start: 20011001, end: 20100930
  5. MULTIVITAMIN PREPARATION + MINERAL SUPPLEMENT [Concomitant]
     Indication: MEDICAL DIET
     Dosage: 1 DF, QD
     Route: 048
     Dates: start: 20100811
  6. POTASSIUM CHLORIDE [Concomitant]
     Indication: HYPOKALAEMIA
     Dosage: 20 MEQ, QD
     Route: 048
     Dates: start: 20100927
  7. LEVEMIR [Concomitant]
     Dosage: 10 U, QD
     Route: 058
     Dates: start: 20101223
  8. BALANCID [CALCIUM CARBONATE] [Concomitant]
     Indication: OSTEOPENIA
     Dosage: DAILY DOSE 600 MG
     Dates: start: 20100811
  9. COZAAR [Concomitant]
     Indication: HYPERTENSION
     Dosage: UNK
     Route: 048
     Dates: start: 20010601
  10. IMODIUM [Concomitant]
     Indication: DIARRHOEA
     Dosage: 2 MG, PRN
     Route: 048
     Dates: start: 20100730
  11. LEVEMIR [Concomitant]
     Indication: DIABETES MELLITUS
     Dosage: DAILY DOSE 65 U
     Dates: start: 20071011, end: 20101223
  12. SORAFENIB (RAF KINASE INHIBITOR) [Suspect]
     Indication: HEPATIC NEOPLASM MALIGNANT
     Dosage: 200 MG, BID
     Route: 048
     Dates: start: 20100617, end: 20110602
  13. ALBUTEROL SULFATE AUTOHALER [Concomitant]
     Indication: ASTHMA
     Dosage: UNK
     Route: 055
     Dates: start: 20020101
  14. VITAMIN D [Concomitant]
     Indication: OSTEOPENIA
     Dosage: 50000 U, QD
     Route: 048
     Dates: start: 20100811
  15. ACULAR LS [Concomitant]
     Indication: DRY EYE
     Dosage: 2 DROPS, QD
     Route: 047
     Dates: start: 20080801
  16. NORVASC [Concomitant]
     Dosage: 20 MG, QD
     Route: 048
     Dates: start: 20101001
  17. POTASSIUM CHLORIDE [Concomitant]
     Dosage: 40 MEQ, BID
     Route: 048
     Dates: start: 20110609
  18. TYLENOL W/ CODEINE NO. 3 [Concomitant]
     Indication: GOUT
     Dosage: ONE TABLET
     Dates: start: 20051001, end: 20090101
  19. TYLENOL W/ CODEINE NO. 3 [Concomitant]
     Indication: ARTHRALGIA
  20. ACETAMINOPHEN W/ CODEINE [Concomitant]
     Indication: PAIN
     Dosage: 600 MG, PRN
     Route: 048
     Dates: start: 20110603
  21. ERGOCALCIFEROL [Concomitant]
     Indication: VITAMIN SUPPLEMENTATION
     Dosage: 50000 U, ONCE MONTHLY
     Route: 048
     Dates: start: 20110603
  22. LOSARTAN POTASSIUM [Concomitant]
     Indication: HYPERTENSION
     Dosage: 10 MG, QD
     Route: 048
     Dates: start: 20110603
  23. ERLOTINIB HYDROCHLORIDE [Suspect]
     Indication: HEPATIC NEOPLASM MALIGNANT
     Dosage: UNK
     Route: 048
     Dates: start: 20100617, end: 20110602
  24. ALBUTEROL SULFATE AUTOHALER [Concomitant]
     Dosage: 180 MCG, PRN
     Dates: start: 20020101
  25. ALBUTEROL SULFATE [Concomitant]
     Indication: ASTHMA
     Dosage: UNK UNK, PRN
     Route: 055
     Dates: start: 20020101
  26. COLCHICINE [Concomitant]
     Indication: GOUT
     Dosage: 1.2 MG, QD
     Route: 048
     Dates: start: 20040602
  27. LEVEMIR [Concomitant]
     Dosage: 10 U, HS
     Dates: start: 20110609
  28. KETOROLAC TROMETHAMINE [Concomitant]
     Indication: DRY EYE
     Dosage: 2 DROPS
     Dates: start: 20080801
  29. CHERATUSSIN AC [Concomitant]
     Indication: COUGH
     Dosage: 12 TSP
     Route: 048
     Dates: start: 20110609
  30. AMBIEN [Concomitant]
     Indication: INSOMNIA
     Dosage: 0.5 DF, QD
     Route: 048
     Dates: start: 20041007
  31. PERIDEX [Concomitant]
     Indication: TONGUE GEOGRAPHIC
     Dosage: 15 ML, QD
     Route: 050
     Dates: start: 20100622, end: 20100801
  32. LORATADINE [Concomitant]
     Indication: MULTIPLE ALLERGIES
     Dosage: 10 MG, QD
     Route: 048
     Dates: start: 20110603
  33. METOPROLOL TARTRATE [Concomitant]
     Indication: HYPERTENSION
     Dosage: 25 MG, Q12H
     Route: 048
     Dates: start: 20110606
  34. ZOLPIDEM [Concomitant]
     Indication: INSOMNIA
     Dosage: 5 MG, QHS
     Route: 048
     Dates: start: 20110603

REACTIONS (2)
  - PNEUMONIA [None]
  - ENCEPHALOPATHY [None]
